FAERS Safety Report 24016841 (Version 1)
Quarter: 2024Q2

REPORT INFORMATION
  Report Type: Spontaneous
  Country: US (occurrence: US)
  Receive Date: 20240626
  Receipt Date: 20240626
  Transmission Date: 20240715
  Serious: Yes (Death, Hospitalization)
  Sender: FDA-Public Use
  Company Number: US-MYLANLABS-2024M1057702

PATIENT
  Age: 70 Year
  Sex: Male

DRUGS (5)
  1. ETOPOSIDE [Suspect]
     Active Substance: ETOPOSIDE
     Indication: Neuroendocrine tumour of the lung
     Dosage: UNK UNK, CYCLE; COMPLETED 4 CYCLES OF TREATMENT
     Route: 065
  2. ETOPOSIDE [Suspect]
     Active Substance: ETOPOSIDE
     Indication: Small cell lung cancer limited stage
  3. CARBOPLATIN [Concomitant]
     Active Substance: CARBOPLATIN
     Indication: Neuroendocrine tumour of the lung
     Dosage: UNK UNK, CYCLE; COMPLETED 4 CYCLES OF TREATMENT
     Route: 065
  4. CARBOPLATIN [Concomitant]
     Active Substance: CARBOPLATIN
     Indication: Small cell lung cancer limited stage
  5. NIMBEX [Concomitant]
     Active Substance: CISATRACURIUM BESYLATE
     Indication: Pulmonary fibrosis
     Dosage: UNK
     Route: 065

REACTIONS (2)
  - Pneumonitis [Fatal]
  - Pulmonary fibrosis [Fatal]
